FAERS Safety Report 25682739 (Version 1)
Quarter: 2025Q3

REPORT INFORMATION
  Report Type: Spontaneous
  Country: US (occurrence: US)
  Receive Date: 20250814
  Receipt Date: 20250814
  Transmission Date: 20251021
  Serious: No
  Sender: PFIZER
  Company Number: US-PFIZER INC-202500161855

PATIENT
  Age: 42 Year
  Sex: Female
  Weight: 63.96 kg

DRUGS (2)
  1. BICILLIN L-A [Suspect]
     Active Substance: PENICILLIN G BENZATHINE
     Indication: Syphilis
     Route: 030
     Dates: start: 20250129, end: 20250129
  2. BICILLIN L-A [Suspect]
     Active Substance: PENICILLIN G BENZATHINE
     Route: 030
     Dates: start: 20250205, end: 20250205

REACTIONS (4)
  - Peripheral swelling [Not Recovered/Not Resolved]
  - Swelling [Not Recovered/Not Resolved]
  - Joint swelling [Not Recovered/Not Resolved]
  - Recalled product administered [Not Recovered/Not Resolved]

NARRATIVE: CASE EVENT DATE: 20250129
